FAERS Safety Report 19078444 (Version 2)
Quarter: 2021Q2

REPORT INFORMATION
  Report Type: Other
  Country: US (occurrence: US)
  Receive Date: 20210331
  Receipt Date: 20210529
  Transmission Date: 20210717
  Serious: Yes (Death)
  Sender: FDA-Public Use
  Company Number: US-ROCHE-2797933

PATIENT
  Sex: Male

DRUGS (1)
  1. VALCYTE [Suspect]
     Active Substance: VALGANCICLOVIR HYDROCHLORIDE
     Indication: RENAL TRANSPLANT
     Route: 065

REACTIONS (2)
  - Death [Fatal]
  - Off label use [Unknown]
